FAERS Safety Report 6398919-8 (Version None)
Quarter: 2009Q4

REPORT INFORMATION
  Report Type: 
  Country: None (occurrence: None)
  Receive Date: 20091013
  Receipt Date: 20091009
  Transmission Date: 20100525
  Serious: Yes (Other)
  Sender: FDA-Public Use
  Company Number: GR-PFIZER INC-2009280732

PATIENT
  Age: 80 Year

DRUGS (4)
  1. REVATIO [Suspect]
     Indication: PULMONARY HYPERTENSION
     Dosage: 20 MG, 2X/DAY
     Route: 048
     Dates: start: 20091001, end: 20091001
  2. LASIX [Concomitant]
     Dosage: UNK
     Route: 048
  3. FILICINE [Concomitant]
     Dosage: UNK
     Route: 048
  4. DUPHALAC [Concomitant]
     Dosage: UNK
     Route: 048

REACTIONS (1)
  - GASTROINTESTINAL HAEMORRHAGE [None]
